FAERS Safety Report 7767044-3 (Version None)
Quarter: 2011Q3

REPORT INFORMATION
  Report Type: 
  Country: None (occurrence: None)
  Receive Date: 20110922
  Receipt Date: 20101105
  Transmission Date: 20111222
  Serious: No
  Sender: FDA-Public Use
  Company Number: US-ASTRAZENECA-2010SE52899

PATIENT
  Age: 67 Year
  Sex: Female
  Weight: 65.8 kg

DRUGS (3)
  1. SEROQUEL [Suspect]
     Indication: BIPOLAR I DISORDER
     Dosage: 50 MG IN THE MORNING AND 50 MG AT BEDTIME
     Route: 048
     Dates: start: 20101103, end: 20101107
  2. AMOXICILLIN [Concomitant]
     Indication: DIVERTICULITIS
  3. SEROQUEL [Suspect]
     Indication: BIPOLAR DISORDER
     Dosage: 50 MG IN THE MORNING AND 50 MG AT BEDTIME
     Route: 048
     Dates: start: 20101103, end: 20101107

REACTIONS (19)
  - IMPAIRED DRIVING ABILITY [None]
  - DRY MOUTH [None]
  - APHASIA [None]
  - SLEEP DISORDER [None]
  - HYPERHIDROSIS [None]
  - DYSARTHRIA [None]
  - CONFUSIONAL STATE [None]
  - SPEECH DISORDER [None]
  - HOT FLUSH [None]
  - FEELING JITTERY [None]
  - ABDOMINAL PAIN UPPER [None]
  - FEELING DRUNK [None]
  - POOR QUALITY SLEEP [None]
  - NAUSEA [None]
  - DIZZINESS [None]
  - CHILLS [None]
  - FEELING ABNORMAL [None]
  - STOMATITIS [None]
  - UPPER-AIRWAY COUGH SYNDROME [None]
